FAERS Safety Report 11168562 (Version 1)
Quarter: 2015Q2

REPORT INFORMATION
  Report Type: Spontaneous
  Country: JP (occurrence: JP)
  Receive Date: 20150605
  Receipt Date: 20150605
  Transmission Date: 20150821
  Serious: Yes (Life-Threatening, Hospitalization)
  Sender: FDA-Public Use
  Company Number: JP-AMGEN-JPNSP2015039988

PATIENT
  Age: 7 Decade
  Sex: Female
  Weight: 57 kg

DRUGS (10)
  1. NOVORAPID [Concomitant]
     Active Substance: INSULIN ASPART
     Indication: TYPE 1 DIABETES MELLITUS
     Dosage: 4 IU, TID
     Route: 058
     Dates: start: 20140806
  2. ATELEC [Concomitant]
     Active Substance: CILNIDIPINE
     Indication: DYSLIPIDAEMIA
  3. GEBEN [Concomitant]
     Indication: DIABETIC ULCER
     Dosage: UNK, QD
     Route: 050
     Dates: start: 20150326, end: 20150421
  4. LANSOPRAZOLE. [Concomitant]
     Active Substance: LANSOPRAZOLE
     Indication: DIABETIC ULCER
     Dosage: 15 MG, QD
     Route: 048
     Dates: start: 20141127
  5. PRALIA [Suspect]
     Active Substance: DENOSUMAB
     Indication: OSTEOPOROSIS
     Dosage: 60 MG, UNK
     Route: 058
     Dates: start: 20150406
  6. DENOTAS [Concomitant]
     Active Substance: CALCIUM CARBONATE\CHOLECALCIFEROL\MAGNESIUM CARBONATE
     Indication: OSTEOPOROSIS
     Dosage: 2 DF, QD
     Route: 048
     Dates: start: 20150330, end: 201504
  7. OLMETEC [Concomitant]
     Active Substance: OLMESARTAN MEDOXOMIL
     Indication: DIABETIC NEPHROPATHY
     Dosage: 20 MG, QD
     Route: 048
     Dates: start: 20140725
  8. TRESIBA [Concomitant]
     Active Substance: INSULIN DEGLUDEC
     Indication: TYPE 1 DIABETES MELLITUS
     Dosage: 10 IU, QD
     Route: 058
     Dates: start: 20140825
  9. ATELEC [Concomitant]
     Active Substance: CILNIDIPINE
     Indication: HYPERTENSION
     Dosage: 60 MG, QD
     Route: 048
     Dates: start: 20140827
  10. DOMPERIDONE [Concomitant]
     Active Substance: DOMPERIDONE
     Indication: DIABETIC AUTONOMIC NEUROPATHY
     Dosage: 10 MG, TID
     Route: 048
     Dates: start: 20140829

REACTIONS (3)
  - Pyelonephritis [Recovering/Resolving]
  - Diabetic ketoacidosis [Recovering/Resolving]
  - Hypocalcaemia [Recovering/Resolving]

NARRATIVE: CASE EVENT DATE: 20150415
